FAERS Safety Report 12890162 (Version 2)
Quarter: 2016Q4

REPORT INFORMATION
  Report Type: Spontaneous
  Country: FR (occurrence: FR)
  Receive Date: 20161027
  Receipt Date: 20161128
  Transmission Date: 20170207
  Serious: Yes (Hospitalization)
  Sender: FDA-Public Use
  Company Number: FR-MUNDIPHARMA DS AND PHARMACOVIGILANCE-GBR-2016-0041307

PATIENT
  Age: 51 Year
  Sex: Male
  Weight: 99 kg

DRUGS (21)
  1. OXYNORM [Suspect]
     Active Substance: OXYCODONE HYDROCHLORIDE
     Indication: PRODUCT USED FOR UNKNOWN INDICATION
     Dosage: 5 MG, UNK
     Route: 048
     Dates: start: 20160903, end: 20161003
  2. VINDESINE [Concomitant]
     Active Substance: VINDESINE
     Dosage: UNK
     Dates: start: 20161007, end: 20161007
  3. MIANSERINE [Concomitant]
     Active Substance: MIANSERIN HYDROCHLORIDE
  4. MORPHINE SULFATE. [Concomitant]
     Active Substance: MORPHINE SULFATE
  5. FLUDEX                             /00340101/ [Concomitant]
     Active Substance: INDAPAMIDE
     Dosage: UNK
     Dates: start: 20160905
  6. DEXAMETHASONE. [Concomitant]
     Active Substance: DEXAMETHASONE
     Dosage: UNK
     Dates: start: 20160914, end: 20161006
  7. PANTOPRAZOLE [Concomitant]
     Active Substance: PANTOPRAZOLE SODIUM
     Dosage: UNK
     Dates: start: 20160902
  8. LAROXYL [Concomitant]
     Active Substance: AMITRIPTYLINE
     Dosage: UNK
     Dates: start: 20160904
  9. NICOPATCH [Concomitant]
     Active Substance: NICOTINE
     Dosage: UNK
     Dates: start: 20160905
  10. TRIAMTERENE. [Concomitant]
     Active Substance: TRIAMTERENE
     Dosage: UNK
     Dates: start: 20160907
  11. CARAFATE [Concomitant]
     Active Substance: SUCRALFATE
     Dosage: UNK
     Dates: start: 20160919
  12. HEXTRIL [Concomitant]
     Dosage: UNK
     Dates: start: 20160902
  13. VITAMIN K [Concomitant]
     Active Substance: PHYTONADIONE
     Dosage: UNK
     Dates: start: 20160905
  14. NEFOPAM [Concomitant]
     Active Substance: NEFOPAM
     Dosage: UNK
     Dates: start: 20160902
  15. METHYLPREDNISOLONE ACETATE. [Concomitant]
     Active Substance: METHYLPREDNISOLONE ACETATE
  16. VINCRISTINE [Suspect]
     Active Substance: VINCRISTINE
     Indication: PHILADELPHIA CHROMOSOME POSITIVE
     Dosage: 2 MG, UNK
     Route: 042
     Dates: start: 20160914, end: 20160928
  17. NILOTINIB [Concomitant]
     Active Substance: NILOTINIB
     Indication: PHILADELPHIA CHROMOSOME POSITIVE
     Dosage: 800 MG, UNK
     Route: 048
     Dates: start: 20160914
  18. FUNGIZONE [Concomitant]
     Active Substance: AMPHOTERICIN B
     Dosage: UNK
     Dates: start: 20160902
  19. NEURONTIN [Suspect]
     Active Substance: GABAPENTIN
     Indication: PRODUCT USED FOR UNKNOWN INDICATION
     Dosage: 300 MG, UNK
     Route: 048
     Dates: start: 20160907
  20. CLOMIFENE CITRATE [Concomitant]
     Active Substance: CLOMIPHENE
  21. CANCIDAS [Concomitant]
     Active Substance: CASPOFUNGIN ACETATE
     Dosage: UNK
     Dates: start: 20160921

REACTIONS (1)
  - Ileus paralytic [Recovered/Resolved]

NARRATIVE: CASE EVENT DATE: 20161006
